FAERS Safety Report 9224963 (Version 1)
Quarter: 2013Q2

REPORT INFORMATION
  Report Type: Spontaneous
  Country: US (occurrence: None)
  Receive Date: 20130410
  Receipt Date: 20130410
  Transmission Date: 20140414
  Serious: Yes (Other)
  Sender: FDA-Public Use
  Company Number: None

PATIENT
  Age: 20 Year
  Sex: Female
  Weight: 69.49 kg

DRUGS (2)
  1. CYMBALTA [Suspect]
     Dates: start: 20130318, end: 20130324
  2. CLONAZEPAM [Concomitant]

REACTIONS (3)
  - Muscle spasms [None]
  - Tremor [None]
  - Emotional disorder [None]
